FAERS Safety Report 7241185-1 (Version None)
Quarter: 2011Q1

REPORT INFORMATION
  Report Type: 
  Country: None (occurrence: None)
  Receive Date: 20110124
  Receipt Date: 20110119
  Transmission Date: 20110831
  Serious: Yes (Death)
  Sender: FDA-Public Use
  Company Number: US-GENZYME-CAMP-1001280

PATIENT
  Age: 26 Year
  Sex: Female

DRUGS (8)
  1. VALGANCICLOVIR HCL [Concomitant]
     Indication: INFECTION PROPHYLAXIS
  2. TRIMETHOPRIM + SULFAMETHOXAZOLE [Concomitant]
     Indication: INFECTION PROPHYLAXIS
  3. TACROLIMUS [Concomitant]
     Indication: IMMUNOSUPPRESSANT DRUG THERAPY
  4. TERBINAFINE HCL [Concomitant]
     Indication: INFECTION PROPHYLAXIS
     Dosage: UNK
  5. MYCOPHENOLATE MOFETIL [Concomitant]
     Indication: IMMUNOSUPPRESSANT DRUG THERAPY
  6. PREDNISONE [Concomitant]
     Indication: IMMUNOSUPPRESSANT DRUG THERAPY
     Dosage: 5 MG, QD
  7. CAMPATH [Suspect]
     Indication: IMMUNOSUPPRESSANT DRUG THERAPY
     Dosage: UNK
     Route: 065
  8. VORICONAZOLE [Concomitant]
     Indication: INFECTION PROPHYLAXIS
     Dosage: UNK
     Route: 048

REACTIONS (3)
  - FUNGAL ABSCESS CENTRAL NERVOUS SYSTEM [None]
  - MEDIASTINITIS [None]
  - VASCULAR PSEUDOANEURYSM RUPTURED [None]
